FAERS Safety Report 10100885 (Version 4)
Quarter: 2014Q4

REPORT INFORMATION
  Report Type: Spontaneous
  Country: MX (occurrence: MX)
  Receive Date: 20140423
  Receipt Date: 20141024
  Transmission Date: 20150528
  Serious: Yes (Hospitalization, Other)
  Sender: FDA-Public Use
  Company Number: MX-ELI_LILLY_AND_COMPANY-MX201404005377

PATIENT
  Age: 56 Year
  Sex: Female
  Weight: 68 kg

DRUGS (4)
  1. HUMALOG MIX50/50 [Suspect]
     Active Substance: INSULIN LISPRO
     Indication: TYPE 2 DIABETES MELLITUS
     Dosage: 62 DF, QD
     Route: 065
  2. HUMALOG MIX50/50 [Suspect]
     Active Substance: INSULIN LISPRO
     Dosage: 68 IU, QD
     Route: 065
  3. DIMEFOR [Concomitant]
     Dosage: 500 MG, BID
  4. DIMEFOR [Concomitant]
     Dosage: 850 MG, BID

REACTIONS (11)
  - Muscular weakness [Recovering/Resolving]
  - Post procedural complication [Unknown]
  - Clavicle fracture [Recovering/Resolving]
  - Fracture [Recovering/Resolving]
  - Malabsorption from injection site [Unknown]
  - Blood glucose increased [Recovered/Resolved]
  - Fall [Recovering/Resolving]
  - Scapula fracture [Recovering/Resolving]
  - Procedural pain [Recovering/Resolving]
  - Intervertebral disc compression [Recovering/Resolving]
  - Contusion [Recovered/Resolved]

NARRATIVE: CASE EVENT DATE: 20140321
